FAERS Safety Report 20131589 (Version 2)
Quarter: 2021Q4

REPORT INFORMATION
  Report Type: Spontaneous
  Country: US (occurrence: US)
  Receive Date: 20211130
  Receipt Date: 20211223
  Transmission Date: 20220304
  Serious: Yes (Death)
  Sender: FDA-Public Use
  Company Number: US-PFIZER INC-202101605796

PATIENT
  Age: 82 Year
  Sex: Male
  Weight: 72.562 kg

DRUGS (2)
  1. RETACRIT [Suspect]
     Active Substance: EPOETIN ALFA-EPBX
     Indication: Haemoglobin decreased
     Dosage: UNK
  2. RETACRIT [Suspect]
     Active Substance: EPOETIN ALFA-EPBX
     Indication: Anaemia

REACTIONS (1)
  - Chronic obstructive pulmonary disease [Fatal]
